FAERS Safety Report 16344639 (Version 1)
Quarter: 2019Q2

REPORT INFORMATION
  Report Type: Report from Study
  Country: US (occurrence: US)
  Receive Date: 20190522
  Receipt Date: 20190522
  Transmission Date: 20190711
  Serious: Yes (Death)
  Sender: FDA-Public Use
  Company Number: PHEH2019US021812

PATIENT
  Age: 51 Year
  Sex: Male

DRUGS (1)
  1. FARYDAK [Suspect]
     Active Substance: PANOBINOSTAT
     Indication: PRODUCT USED FOR UNKNOWN INDICATION
     Dosage: 2 DF, Q3W
     Route: 048
     Dates: start: 20181117

REACTIONS (1)
  - Death [Fatal]

NARRATIVE: CASE EVENT DATE: 20181201
